FAERS Safety Report 18584588 (Version 4)
Quarter: 2025Q4

REPORT INFORMATION
  Report Type: Spontaneous
  Country: EU (occurrence: EU)
  Receive Date: 20201207
  Receipt Date: 20251113
  Transmission Date: 20260117
  Serious: Yes (Other)
  Sender: ROCHE
  Company Number: EU-TEVA-2020-CZ-1849893

PATIENT
  Age: 61 Year
  Sex: Female

DRUGS (8)
  1. TRASTUZUMAB [Suspect]
     Active Substance: TRASTUZUMAB
     Indication: Intraductal proliferative breast lesion
     Route: 065
     Dates: start: 201608, end: 201610
  2. TRASTUZUMAB [Suspect]
     Active Substance: TRASTUZUMAB
     Indication: Chemotherapy
  3. TRASTUZUMAB [Suspect]
     Active Substance: TRASTUZUMAB
     Indication: HER2 positive breast cancer
  4. DOCETAXEL [Suspect]
     Active Substance: DOCETAXEL
     Indication: Intraductal proliferative breast lesion
     Route: 065
     Dates: start: 201608, end: 201610
  5. DOCETAXEL [Suspect]
     Active Substance: DOCETAXEL
     Indication: Chemotherapy
  6. DOCETAXEL [Suspect]
     Active Substance: DOCETAXEL
     Indication: HER2 positive breast cancer
  7. CYCLOPHOSPHAMIDE [Suspect]
     Active Substance: CYCLOPHOSPHAMIDE
     Indication: Intraductal proliferative breast lesion
     Dosage: 4 CYCLES
     Route: 065
     Dates: start: 201606, end: 201608
  8. DOXORUBICIN [Suspect]
     Active Substance: DOXORUBICIN
     Indication: Intraductal proliferative breast lesion
     Dosage: 4 CYCLES
     Route: 065
     Dates: start: 201606, end: 201608

REACTIONS (1)
  - Haematotoxicity [Unknown]
